FAERS Safety Report 24169209 (Version 5)
Quarter: 2025Q1

REPORT INFORMATION
  Report Type: Spontaneous
  Country: GR (occurrence: GR)
  Receive Date: 20240802
  Receipt Date: 20250102
  Transmission Date: 20250409
  Serious: No
  Sender: PFIZER
  Company Number: GR-PFIZER INC-PV202400099136

PATIENT
  Age: 8 Year
  Sex: Male
  Weight: 35 kg

DRUGS (2)
  1. GENOTROPIN [Suspect]
     Active Substance: SOMATROPIN
     Indication: Growth hormone deficiency
     Dosage: 5.3 MG, WEEKLY
     Route: 058
     Dates: start: 201804
  2. LEVOTHYROXINE [Concomitant]
     Active Substance: LEVOTHYROXINE
     Indication: Thyroid disorder

REACTIONS (2)
  - Device use error [Not Recovered/Not Resolved]
  - Device breakage [Not Recovered/Not Resolved]
